FAERS Safety Report 5195555-6 (Version None)
Quarter: 2006Q4

REPORT INFORMATION
  Report Type: 
  Country: None (occurrence: None)
  Receive Date: 20061226
  Receipt Date: 20061226
  Transmission Date: 20070319
  Serious: Yes (Hospitalization)
  Sender: FDA-Public Use
  Company Number: None

PATIENT
  Sex: Female
  Weight: 26.1 kg

DRUGS (1)
  1. RANITIDINE [Suspect]
     Indication: PANCREATITIS
     Dosage: 100 MG    Q6H     IV
     Route: 042
     Dates: start: 20061208, end: 20061210

REACTIONS (4)
  - CONDITION AGGRAVATED [None]
  - MEDICATION ERROR [None]
  - OVERDOSE [None]
  - PANCREATITIS [None]
